FAERS Safety Report 11889564 (Version 1)
Quarter: 2016Q1

REPORT INFORMATION
  Report Type: Spontaneous
  Country: FR (occurrence: FR)
  Receive Date: 20160105
  Receipt Date: 20160105
  Transmission Date: 20160526
  Serious: Yes (Death, Hospitalization)
  Sender: FDA-Public Use
  Company Number: FR-OTSUKA-2015_018144

PATIENT
  Age: 60 Year
  Sex: Female

DRUGS (4)
  1. THYMOGLOBULIN [Suspect]
     Active Substance: LAPINE T-LYMPHOCYTE IMMUNE GLOBULIN
     Indication: STEM CELL TRANSPLANT
     Dosage: 175 MG/DAY
     Route: 042
     Dates: start: 20150406, end: 20150407
  2. CICLOSPORIN [Concomitant]
     Active Substance: CYCLOSPORINE
     Indication: PRODUCT USED FOR UNKNOWN INDICATION
     Dosage: UNK
     Route: 065
     Dates: start: 20150406, end: 20150516
  3. BUSULFAN [Suspect]
     Active Substance: BUSULFAN
     Indication: STEM CELL TRANSPLANT
     Dosage: 218 MG/DAY
     Route: 042
     Dates: start: 20150403, end: 20150406
  4. FLUDARA [Suspect]
     Active Substance: FLUDARABINE PHOSPHATE
     Indication: STEM CELL TRANSPLANT
     Dosage: 60 MG/DAY
     Route: 042
     Dates: start: 20150403, end: 20150407

REACTIONS (1)
  - Pseudomonal sepsis [Fatal]

NARRATIVE: CASE EVENT DATE: 20150523
